FAERS Safety Report 4833127-0 (Version None)
Quarter: 2005Q4

REPORT INFORMATION
  Report Type: 
  Country: None (occurrence: None)
  Receive Date: 20051117
  Receipt Date: 20051107
  Transmission Date: 20060501
  Serious: Yes (Other)
  Sender: FDA-Public Use
  Company Number: 2005152325

PATIENT
  Sex: Female

DRUGS (1)
  1. LIPITOR [Suspect]
     Indication: BLOOD CHOLESTEROL INCREASED
     Dosage: UNKNOWN
     Route: 065

REACTIONS (3)
  - CEREBROVASCULAR ACCIDENT [None]
  - WEIGHT INCREASED [None]
  - WHEELCHAIR USER [None]
